FAERS Safety Report 7961544-9 (Version None)
Quarter: 2011Q4

REPORT INFORMATION
  Report Type: 
  Country: None (occurrence: None)
  Receive Date: 20111202
  Receipt Date: 20111202
  Transmission Date: 20120403
  Serious: No
  Sender: FDA-Public Use
  Company Number: None

PATIENT
  Sex: Male

DRUGS (1)
  1. COPAXONE [Suspect]
     Dosage: 20MG DAILY SUBQ
     Route: 058
     Dates: start: 20100708, end: 20111128

REACTIONS (1)
  - WHITE BLOOD CELL COUNT DECREASED [None]
